FAERS Safety Report 16280683 (Version 2)
Quarter: 2019Q2

REPORT INFORMATION
  Report Type: Spontaneous
  Country: US (occurrence: US)
  Receive Date: 20190507
  Receipt Date: 20190523
  Transmission Date: 20190711
  Serious: Yes (Death)
  Sender: FDA-Public Use
  Company Number: US-ACCORD-126109

PATIENT
  Sex: Male

DRUGS (1)
  1. CLOZAPINE. [Suspect]
     Active Substance: CLOZAPINE
     Indication: SCHIZOPHRENIA
     Dosage: 1 TABLET IN THE MORNING AND 4 TABLETS IN THE EVENING
     Route: 048
     Dates: start: 20060515

REACTIONS (1)
  - Cardiac arrest [Fatal]
